FAERS Safety Report 25622506 (Version 3)
Quarter: 2025Q3

REPORT INFORMATION
  Report Type: Spontaneous
  Country: CN (occurrence: CN)
  Receive Date: 20250730
  Receipt Date: 20250812
  Transmission Date: 20251021
  Serious: Yes (Life-Threatening, Hospitalization, Other)
  Sender: PFIZER
  Company Number: CN-MLMSERVICE-20250724-PI587749-00270-2

PATIENT
  Age: 76 Year
  Sex: Male

DRUGS (3)
  1. METHYLPREDNISOLONE [Suspect]
     Active Substance: METHYLPREDNISOLONE
  2. HYDROXYCHLOROQUINE [Suspect]
     Active Substance: HYDROXYCHLOROQUINE
  3. CYCLOPHOSPHAMIDE [Suspect]
     Active Substance: CYCLOPHOSPHAMIDE

REACTIONS (10)
  - Interstitial lung disease [Unknown]
  - Sepsis [Recovering/Resolving]
  - Bacterial infection [Recovering/Resolving]
  - Staphylococcal infection [Recovering/Resolving]
  - Bacteroides infection [Recovering/Resolving]
  - Staphylococcal infection [Recovering/Resolving]
  - Klebsiella infection [Recovering/Resolving]
  - Acinetobacter infection [Recovering/Resolving]
  - Streptococcal infection [Recovering/Resolving]
  - Ecchymosis [Recovering/Resolving]
